FAERS Safety Report 5465771-4 (Version None)
Quarter: 2007Q3

REPORT INFORMATION
  Report Type: 
  Country: None (occurrence: None)
  Receive Date: 20070924
  Receipt Date: 20070920
  Transmission Date: 20080115
  Serious: No
  Sender: FDA-Public Use
  Company Number: B0484782A

PATIENT
  Age: 37 Year
  Sex: Female

DRUGS (2)
  1. FLUNASE (JAPAN) [Suspect]
     Indication: SEASONAL ALLERGY
     Dosage: 50MCG TWICE PER DAY
     Route: 045
     Dates: start: 20070216, end: 20070220
  2. ONON [Concomitant]
     Indication: SEASONAL ALLERGY
     Dosage: 450MG PER DAY
     Route: 048
     Dates: start: 20070216, end: 20070220

REACTIONS (1)
  - METRORRHAGIA [None]
